FAERS Safety Report 20377010 (Version 2)
Quarter: 2022Q1

REPORT INFORMATION
  Report Type: Spontaneous
  Country: US (occurrence: US)
  Receive Date: 20220125
  Receipt Date: 20220207
  Transmission Date: 20220423
  Serious: Yes (Hospitalization, Other)
  Sender: FDA-Public Use
  Company Number: US-GILEAD-2022-0565768

PATIENT
  Age: 8 Year
  Sex: Male
  Weight: 33.4 kg

DRUGS (4)
  1. REMDESIVIR [Suspect]
     Active Substance: REMDESIVIR
     Indication: COVID-19
     Dosage: 170 MG (5MG/KG) (LOADING DOSE)
     Route: 042
     Dates: start: 20220104, end: 20220105
  2. REMDESIVIR [Suspect]
     Active Substance: REMDESIVIR
     Dosage: 85 MG, QD (2.5 MG/KG) (2 DOSES)
     Route: 042
     Dates: start: 20220106, end: 20220108
  3. MIRALAX [Concomitant]
     Active Substance: POLYETHYLENE GLYCOL 3350
     Dosage: UNK
     Dates: start: 20220107
  4. DIPHENHYDRAMINE [Concomitant]
     Active Substance: DIPHENHYDRAMINE

REACTIONS (5)
  - Back pain [Not Recovered/Not Resolved]
  - Acute chest syndrome [Recovered/Resolved]
  - Sickle cell anaemia with crisis [Recovered/Resolved]
  - Cardiomegaly [Recovered/Resolved]
  - COVID-19 [Recovered/Resolved]

NARRATIVE: CASE EVENT DATE: 20220110
